FAERS Safety Report 26097364 (Version 1)
Quarter: 2025Q4

REPORT INFORMATION
  Report Type: Spontaneous
  Country: US (occurrence: US)
  Receive Date: 20251127
  Receipt Date: 20251127
  Transmission Date: 20260118
  Serious: Yes (Other)
  Sender: ANI
  Company Number: US-ANIPHARMA-031191

PATIENT
  Age: 39 Year
  Sex: Female

DRUGS (1)
  1. TERBUTALINE SULFATE [Suspect]
     Active Substance: TERBUTALINE SULFATE
     Indication: Premature labour
     Dosage: PIILS AND PUMP
     Dates: start: 2007

REACTIONS (4)
  - Cardiac arrest [Unknown]
  - Thrombosis [Unknown]
  - Asthma [Unknown]
  - Exposure during pregnancy [Unknown]
